FAERS Safety Report 8445617-2 (Version None)
Quarter: 2012Q2

REPORT INFORMATION
  Report Type: 
  Country: None (occurrence: None)
  Receive Date: 20120618
  Receipt Date: 20120306
  Transmission Date: 20120825
  Serious: No
  Sender: FDA-Public Use
  Company Number: US-MYLANLABS-2012S1004876

PATIENT
  Age: 74 Year
  Sex: Female

DRUGS (5)
  1. SOTALOL HYDROCHLORIDE [Concomitant]
     Indication: PALPITATIONS
  2. HYDROCHLOROTHIAZIDE [Concomitant]
     Indication: BLOOD PRESSURE
  3. BYSTOLIC [Concomitant]
     Indication: BLOOD PRESSURE
  4. NIFEDIPINE [Suspect]
     Indication: BLOOD PRESSURE
     Route: 048
     Dates: start: 20111201
  5. ATACAND [Concomitant]
     Indication: BLOOD PRESSURE

REACTIONS (2)
  - DRUG EFFECT DECREASED [None]
  - BLOOD PRESSURE INCREASED [None]
